FAERS Safety Report 4603560-0 (Version None)
Quarter: 2005Q1

REPORT INFORMATION
  Report Type: 
  Country: None (occurrence: None)
  Receive Date: 20050308
  Receipt Date: 20050223
  Transmission Date: 20050727
  Serious: Yes (Hospitalization)
  Sender: FDA-Public Use
  Company Number: HQWYE016602FEB05

PATIENT
  Age: 50 Year
  Sex: Male

DRUGS (9)
  1. RAPAMUNE [Suspect]
     Indication: PROPHYLAXIS AGAINST TRANSPLANT REJECTION
     Dosage: 1 MG 1X PER 1 DAY ORAL
     Route: 048
     Dates: start: 20041215
  2. PREDNISONE [Concomitant]
  3. ATENOLOL [Concomitant]
  4. NIFEDIPINE [Concomitant]
  5. RANITIDINE [Concomitant]
  6. NYSTATINE (NYSTATIN) [Concomitant]
  7. BACTRIM [Concomitant]
  8. ASPIRIN [Concomitant]
  9. CYCLOSPORINE [Concomitant]

REACTIONS (3)
  - DIABETES MELLITUS [None]
  - LOBAR PNEUMONIA [None]
  - LYMPHOCELE [None]
